FAERS Safety Report 5371817-4 (Version None)
Quarter: 2007Q2

REPORT INFORMATION
  Report Type: 
  Country: None (occurrence: None)
  Receive Date: 20070627
  Receipt Date: 20070618
  Transmission Date: 20071010
  Serious: Yes (Hospitalization)
  Sender: FDA-Public Use
  Company Number: JP-AVENTIS-200715536GDDC

PATIENT
  Age: 37 Year
  Sex: Female

DRUGS (4)
  1. RIFADIN [Suspect]
     Indication: TUBERCULOUS PLEURISY
     Dates: start: 20070228
  2. PYRAMIDE [Suspect]
     Indication: TUBERCULOUS PLEURISY
     Dates: start: 20070228
  3. ETHAMBUTOL HYDROCHLORIDE [Suspect]
     Dates: start: 20070228
  4. ISCOTIN                            /00030201/ [Concomitant]
     Route: 048
     Dates: start: 20070228, end: 20070409

REACTIONS (1)
  - POLYARTHRITIS [None]
